FAERS Safety Report 18895013 (Version 3)
Quarter: 2021Q2

REPORT INFORMATION
  Report Type: Report from Study
  Country: GB (occurrence: GB)
  Receive Date: 20210216
  Receipt Date: 20210522
  Transmission Date: 20210717
  Serious: Yes (Hospitalization, Other)
  Sender: FDA-Public Use
  Company Number: GB-AUROBINDO-AUR-APL-2021-005629

PATIENT
  Age: 39 Year
  Sex: Female

DRUGS (6)
  1. TRAMADOL. [Suspect]
     Active Substance: TRAMADOL
     Indication: PAIN
     Dosage: UNK
     Route: 065
  2. IMRALDI [Suspect]
     Active Substance: ADALIMUMAB
     Dosage: 40 MILLIGRAM
     Route: 058
  3. IMRALDI [Suspect]
     Active Substance: ADALIMUMAB
     Indication: PSORIATIC ARTHROPATHY
     Dosage: 40 MILLIGRAM EVERY 10 DAYS
     Route: 058
  4. IMRALDI [Suspect]
     Active Substance: ADALIMUMAB
     Indication: PSORIATIC ARTHROPATHY
     Dosage: 40 MILLIGRAM  2/WEEK
     Route: 058
     Dates: start: 20200127
  5. TRAMADOL. [Suspect]
     Active Substance: TRAMADOL
     Dosage: UNKNOWN
     Route: 065
  6. IMRALDI [Suspect]
     Active Substance: ADALIMUMAB
     Dosage: 40 MILLIGRAM  (10 DAYS)
     Route: 058

REACTIONS (21)
  - Decreased appetite [Unknown]
  - Asthenia [Unknown]
  - Vasculitis [Unknown]
  - Chest pain [Unknown]
  - Body temperature increased [Unknown]
  - Burning sensation [Unknown]
  - Fatigue [Unknown]
  - Pneumonitis [Unknown]
  - Alopecia [Unknown]
  - Apathy [Unknown]
  - Ill-defined disorder [Unknown]
  - Sleep disorder [Unknown]
  - Haematuria [Unknown]
  - Poor quality sleep [Unknown]
  - Depressed mood [Unknown]
  - Therapeutic product effect decreased [Unknown]
  - Hallucination [Unknown]
  - Psoriatic arthropathy [Unknown]
  - Weight decreased [Unknown]
  - Therapeutic response shortened [Unknown]
  - Off label use [Unknown]
